FAERS Safety Report 12289013 (Version 2)
Quarter: 2016Q2

REPORT INFORMATION
  Report Type: Report from Study
  Country: CZ (occurrence: CZ)
  Receive Date: 20160421
  Receipt Date: 20160425
  Transmission Date: 20160815
  Serious: Yes (Hospitalization)
  Sender: FDA-Public Use
  Company Number: CZ-ROCHE-1728430

PATIENT
  Age: 73 Year
  Sex: Female
  Weight: 95 kg

DRUGS (37)
  1. RITUXIMAB [Suspect]
     Active Substance: RITUXIMAB
     Indication: NON-HODGKIN^S LYMPHOMA
     Dosage: MOST RECENT DOSE OF RITUXIMAB PRIOR TO AE ONSET: 01/MAR/2016 AT 15:20?LAST ADMINISTERED DOSE: 749 (U
     Route: 042
     Dates: start: 20160301
  2. FUROSEMID [Concomitant]
     Active Substance: FUROSEMIDE
     Route: 065
     Dates: start: 20160226, end: 20160304
  3. SIOFOR [Concomitant]
     Active Substance: METFORMIN HYDROCHLORIDE
     Indication: DIABETES MELLITUS
     Route: 065
     Dates: start: 2013
  4. DEGAN [Concomitant]
     Active Substance: METOCLOPRAMIDE HYDROCHLORIDE
     Indication: PROPHYLAXIS
     Route: 065
     Dates: start: 20160318, end: 20160320
  5. CIPLOX [Concomitant]
     Active Substance: CIPROFLOXACIN HYDROCHLORIDE
     Route: 065
     Dates: start: 20160318, end: 20160324
  6. KALNORMIN [Concomitant]
     Active Substance: POTASSIUM CHLORIDE
     Route: 065
     Dates: start: 20160226, end: 20160305
  7. FUROSEMID [Concomitant]
     Active Substance: FUROSEMIDE
     Route: 065
     Dates: start: 20160317, end: 20160319
  8. LACTULOSE. [Concomitant]
     Active Substance: LACTULOSE
     Indication: CONSTIPATION
     Route: 065
     Dates: start: 20160303, end: 20160305
  9. APO-DICLO [Concomitant]
     Indication: BACK PAIN
     Route: 065
     Dates: start: 201602
  10. GLYCERIN. [Concomitant]
     Active Substance: GLYCERIN
     Route: 065
     Dates: start: 20160228, end: 20160229
  11. KALNORMIN [Concomitant]
     Active Substance: POTASSIUM CHLORIDE
     Route: 065
     Dates: start: 20160318, end: 20160318
  12. SOLU-MEDROL [Concomitant]
     Active Substance: METHYLPREDNISOLONE SODIUM SUCCINATE
     Route: 065
     Dates: start: 20160225, end: 20160301
  13. NOVALGIN (CZECH REPUBLIC) [Concomitant]
     Route: 065
     Dates: start: 20160225, end: 20160305
  14. SALINE [Concomitant]
     Active Substance: SODIUM CHLORIDE
     Route: 065
     Dates: start: 20160225, end: 20160304
  15. SALINE [Concomitant]
     Active Substance: SODIUM CHLORIDE
     Route: 065
     Dates: start: 20160316, end: 20160323
  16. FLUCONAZOL [Concomitant]
     Active Substance: FLUCONAZOLE
     Indication: ORAL CANDIDIASIS
     Route: 065
     Dates: start: 20160316, end: 20160322
  17. FRAXIPARINE [Concomitant]
     Active Substance: NADROPARIN CALCIUM
     Indication: PROPHYLAXIS
     Route: 065
     Dates: start: 20160316
  18. VINCRISTINE [Suspect]
     Active Substance: VINCRISTINE
     Indication: NON-HODGKIN^S LYMPHOMA
     Dosage: DOSE OF LAST VINCRISTINE ADMINISTERED 2 (UNITS NOT REPORTED) ON 01/MAR/2016 AT 2100
     Route: 065
     Dates: start: 20160301
  19. OMEPRAZOL [Concomitant]
     Active Substance: OMEPRAZOLE
     Indication: PROPHYLAXIS AGAINST GASTROINTESTINAL ULCER
     Route: 065
     Dates: start: 20160225, end: 20160305
  20. COTRIMOXAZOL [Concomitant]
     Active Substance: SULFAMETHOXAZOLE\TRIMETHOPRIM
     Indication: INFECTION PROPHYLAXIS
     Route: 065
     Dates: start: 20160229, end: 20160316
  21. DITHIADEN [Concomitant]
     Active Substance: BISULEPIN
     Indication: PREMEDICATION
     Route: 065
     Dates: start: 20160301, end: 20160301
  22. ZARZIO [Concomitant]
     Active Substance: FILGRASTIM
     Indication: PROPHYLAXIS
     Route: 065
     Dates: start: 20160306, end: 20160314
  23. BETAMED (BETAXOLOL HYDROCHLORIDE) [Concomitant]
     Indication: HYPERTENSION
     Route: 065
     Dates: start: 2008
  24. OMEPRAZOL [Concomitant]
     Active Substance: OMEPRAZOLE
     Route: 065
     Dates: start: 20160317, end: 20160401
  25. PARALEN (CZECH REPUBLIC) [Concomitant]
     Indication: PREMEDICATION
     Route: 065
     Dates: start: 20160301, end: 20160301
  26. ONDANSETRON [Concomitant]
     Active Substance: ONDANSETRON
     Indication: PROPHYLAXIS OF NAUSEA AND VOMITING
     Route: 065
     Dates: start: 20160301, end: 20160301
  27. TAMIFLU [Concomitant]
     Active Substance: OSELTAMIVIR PHOSPHATE
     Indication: PROPHYLAXIS
     Route: 065
     Dates: start: 20160316, end: 20160411
  28. LEXAURIN [Concomitant]
     Active Substance: BROMAZEPAM
     Indication: INSOMNIA
     Route: 065
     Dates: start: 20160319, end: 20160403
  29. CYCLOPHOSPHAMIDE. [Suspect]
     Active Substance: CYCLOPHOSPHAMIDE
     Indication: NON-HODGKIN^S LYMPHOMA
     Dosage: DOSE OF LAST CYCLOPHOSPHAMIDE 1490 (UNITS NOT REPORTED) ON 01/MAR/2016 AT 19:20
     Route: 065
     Dates: start: 20160301
  30. DOXORUBICIN [Suspect]
     Active Substance: DOXORUBICIN
     Indication: NON-HODGKIN^S LYMPHOMA
     Dosage: DOSE OF LAST DOXORUBICIN ADMINISTERED 99 (UNITS NOT REPORTED) ON 01/MAR/2016 AT 20:20
     Route: 065
     Dates: start: 20160301
  31. RILMENIDINA [Concomitant]
     Indication: HYPERTENSION
     Route: 065
     Dates: start: 2008
  32. VALACICLOVIR [Concomitant]
     Active Substance: VALACYCLOVIR HYDROCHLORIDE
     Route: 065
     Dates: start: 20160229
  33. MODURETIC 5-50 [Concomitant]
     Active Substance: AMILORIDE HYDROCHLORIDE\HYDROCHLOROTHIAZIDE
     Indication: OEDEMA PERIPHERAL
     Route: 065
     Dates: start: 2008
  34. MILURIT [Concomitant]
     Active Substance: ALLOPURINOL
     Route: 065
     Dates: start: 201601, end: 20160305
  35. GDC-0199 (BCL-2 SELECTIVE INHIBITOR) [Suspect]
     Active Substance: VENETOCLAX
     Indication: NON-HODGKIN^S LYMPHOMA
     Dosage: MOST RECENT DOSE OF GDC-0199 PRIOR TO AE ONSET: 800 (UNITS NOT REPORTED) ON 10/MAR/2016
     Route: 048
     Dates: start: 20160304
  36. PREDNISONE. [Suspect]
     Active Substance: PREDNISONE
     Indication: NON-HODGKIN^S LYMPHOMA
     Dosage: DOSE OF LAST PREDNISONE ADMINISTERED 100 (UNITS NOT REPORTED) ON 05/MAR/2016
     Route: 065
     Dates: start: 20160302
  37. ONDANSETRON [Concomitant]
     Active Substance: ONDANSETRON
     Route: 065
     Dates: start: 20160316, end: 20160317

REACTIONS (1)
  - Hyponatraemia [Recovered/Resolved]

NARRATIVE: CASE EVENT DATE: 20160316
